FAERS Safety Report 11532618 (Version 2)
Quarter: 2015Q4

REPORT INFORMATION
  Report Type: Spontaneous
  Country: US (occurrence: US)
  Receive Date: 20150921
  Receipt Date: 20151001
  Transmission Date: 20160304
  Serious: Yes (Other)
  Sender: FDA-Public Use
  Company Number: US-APOTEX-2015AP012947

PATIENT
  Age: 25 Year
  Sex: Female

DRUGS (2)
  1. MYCOPHENOLATE MOFETIL. [Suspect]
     Active Substance: MYCOPHENOLATE MOFETIL
     Indication: PROPHYLAXIS
     Route: 065
  2. TACROLIMUS. [Suspect]
     Active Substance: TACROLIMUS
     Indication: PROPHYLAXIS
     Route: 065

REACTIONS (3)
  - Posterior reversible encephalopathy syndrome [Recovered/Resolved]
  - Graft versus host disease in gastrointestinal tract [Unknown]
  - Thrombotic microangiopathy [Recovered/Resolved]
